FAERS Safety Report 5474381-4 (Version None)
Quarter: 2007Q3

REPORT INFORMATION
  Report Type: 
  Country: None (occurrence: None)
  Receive Date: 20070831
  Receipt Date: 20070406
  Transmission Date: 20080115
  Serious: No
  Sender: FDA-Public Use
  Company Number: 239641

PATIENT
  Age: 69 Year
  Sex: Female

DRUGS (10)
  1. LUCENTIS [Suspect]
     Indication: DRUG USE FOR UNKNOWN INDICATION
     Dates: start: 20070404
  2. ZOCOR [Concomitant]
  3. ATENOLOL [Concomitant]
  4. LISINOPRIL [Concomitant]
  5. SYNTHROID [Concomitant]
  6. PREMARIN [Concomitant]
  7. EYE CAPS(UNK INGREDIENTS) (GENERIC COMPONENT(S) NOT KNOWN) [Concomitant]
  8. ASPIRIN [Concomitant]
  9. DAILY VITAMIN(VITAMINS NOS) [Concomitant]
  10. CALCIUM(CALCIUM NOS) [Concomitant]

REACTIONS (1)
  - EYE DISCHARGE [None]
